FAERS Safety Report 8102790-3 (Version None)
Quarter: 2012Q1

REPORT INFORMATION
  Report Type: 
  Country: None (occurrence: None)
  Receive Date: 20120127
  Receipt Date: 20120123
  Transmission Date: 20120608
  Serious: Yes (Death, Other)
  Sender: FDA-Public Use
  Company Number: 2011SP058167

PATIENT
  Age: 80 Year
  Sex: Male

DRUGS (2)
  1. ORGARAN [Suspect]
     Indication: HEPARIN-INDUCED THROMBOCYTOPENIA
     Dosage: 750 IU;QD;
  2. ASPIRIN [Concomitant]

REACTIONS (15)
  - CLOSTRIDIAL INFECTION [None]
  - DIARRHOEA [None]
  - ASPIRATION [None]
  - PNEUMONIA [None]
  - STAPHYLOCOCCAL INFECTION [None]
  - CRITICAL ILLNESS POLYNEUROPATHY [None]
  - PULMONARY EMBOLISM [None]
  - CHRONIC RESPIRATORY FAILURE [None]
  - GASTROINTESTINAL ULCER HAEMORRHAGE [None]
  - RECTAL ULCER HAEMORRHAGE [None]
  - INTRACRANIAL TUMOUR HAEMORRHAGE [None]
  - GENERAL PHYSICAL HEALTH DETERIORATION [None]
  - PULMONARY OEDEMA [None]
  - RENAL FAILURE ACUTE [None]
  - UNDERDOSE [None]
